FAERS Safety Report 6716815-0 (Version None)
Quarter: 2010Q2

REPORT INFORMATION
  Report Type: 
  Country: None (occurrence: None)
  Receive Date: 20100510
  Receipt Date: 20100423
  Transmission Date: 20101027
  Serious: Yes (Hospitalization, Other)
  Sender: FDA-Public Use
  Company Number: US-BAYER-200939460NA

PATIENT
  Age: 20 Year
  Sex: Female
  Weight: 50 kg

DRUGS (1)
  1. YASMIN [Suspect]
     Indication: DRUG USE FOR UNKNOWN INDICATION
     Route: 048
     Dates: start: 20020101, end: 20070101

REACTIONS (8)
  - ABDOMINAL PAIN LOWER [None]
  - BLADDER DISORDER [None]
  - DIARRHOEA [None]
  - HEADACHE [None]
  - INJURY [None]
  - NAUSEA [None]
  - THROMBOSIS [None]
  - URINARY TRACT INFECTION [None]
